FAERS Safety Report 5040757-2 (Version None)
Quarter: 2006Q2

REPORT INFORMATION
  Report Type: 
  Country: None (occurrence: None)
  Receive Date: 20060601
  Receipt Date: 20060306
  Transmission Date: 20061013
  Serious: No
  Sender: FDA-Public Use
  Company Number: 2006PV009720

PATIENT
  Age: 50 Year
  Sex: Female
  Weight: 95.2554 kg

DRUGS (6)
  1. BYETTA [Suspect]
     Indication: DIABETES MELLITUS
     Dosage: 5 MCG;BID
     Dates: start: 20060210, end: 20060303
  2. BYETTA [Suspect]
     Indication: GLUCOSE TOLERANCE IMPAIRED
     Dosage: 5 MCG;BID
     Dates: start: 20060210, end: 20060303
  3. BYETTA [Suspect]
     Indication: METABOLIC SYNDROME
     Dosage: 5 MCG;BID
     Dates: start: 20060210, end: 20060303
  4. GLUCOPHAGE XR [Concomitant]
  5. CHROMIUM [Concomitant]
  6. HERBAL PREPARATIONS [Concomitant]

REACTIONS (2)
  - CHEST DISCOMFORT [None]
  - INJECTION SITE URTICARIA [None]
